FAERS Safety Report 8558055-9 (Version None)
Quarter: 2012Q3

REPORT INFORMATION
  Report Type: 
  Country: None (occurrence: None)
  Receive Date: 20120801
  Receipt Date: 20120724
  Transmission Date: 20120928
  Serious: Yes (Disabling)
  Sender: FDA-Public Use
  Company Number: US-ELI_LILLY_AND_COMPANY-US201207007616

PATIENT
  Sex: Female

DRUGS (1)
  1. EVISTA [Suspect]
     Dosage: 60 MG, QD

REACTIONS (6)
  - INFLAMMATION [None]
  - ARTHROPATHY [None]
  - JOINT SWELLING [None]
  - MOBILITY DECREASED [None]
  - ARTHRALGIA [None]
  - BURSITIS [None]
